FAERS Safety Report 21213206 (Version 4)
Quarter: 2023Q1

REPORT INFORMATION
  Report Type: Spontaneous
  Country: JP (occurrence: JP)
  Receive Date: 20220815
  Receipt Date: 20230110
  Transmission Date: 20230417
  Serious: Yes (Death, Life-Threatening)
  Sender: FDA-Public Use
  Company Number: JP-MSD-2207JPN003387J

PATIENT
  Age: 60 Year
  Sex: Male

DRUGS (8)
  1. LAGEVRIO [Suspect]
     Active Substance: MOLNUPIRAVIR
     Indication: COVID-19 treatment
     Dosage: 800 MILLIGRAM, BID
     Route: 048
     Dates: start: 20220723, end: 20220724
  2. CLOPIDOGREL BISULFATE [Concomitant]
     Active Substance: CLOPIDOGREL BISULFATE
     Dosage: 75 MILLIGRAM
     Route: 048
  3. ASPIRIN\DIHYDROXYALUMINUM AMINOACETATE ANHYDROUS\MAGNESIUM CARBONATE [Concomitant]
     Active Substance: ASPIRIN\DIHYDROXYALUMINUM AMINOACETATE ANHYDROUS\MAGNESIUM CARBONATE
     Dosage: 81 MILLIGRAM
     Route: 048
  4. CILNIDIPINE [Concomitant]
     Active Substance: CILNIDIPINE
     Dosage: 20 MILLIGRAM
     Route: 048
  5. TENELIGLIPTIN [Concomitant]
     Active Substance: TENELIGLIPTIN
     Dosage: 20 MILLIGRAM
     Route: 048
  6. SAMSCA [Concomitant]
     Active Substance: TOLVAPTAN
     Dosage: 7.5 MILLIGRAM
     Route: 048
  7. ENTRESTO [Concomitant]
     Active Substance: SACUBITRIL\VALSARTAN
     Dosage: 200 MILLIGRAM
     Route: 048
  8. LANSOPRAZOLE [Concomitant]
     Active Substance: LANSOPRAZOLE
     Dosage: UNK
     Route: 048

REACTIONS (3)
  - Dysphagia [Not Recovered/Not Resolved]
  - COVID-19 [Fatal]
  - Product use in unapproved indication [Unknown]

NARRATIVE: CASE EVENT DATE: 20220101
